FAERS Safety Report 14719412 (Version 1)
Quarter: 2018Q2

REPORT INFORMATION
  Report Type: Spontaneous
  Country: US (occurrence: US)
  Receive Date: 20180405
  Receipt Date: 20180405
  Transmission Date: 20180711
  Serious: No
  Sender: FDA-Public Use
  Company Number: US-BEH-2018089273

PATIENT
  Age: 76 Year
  Sex: Female
  Weight: 48.73 kg

DRUGS (18)
  1. HIZENTRA [Suspect]
     Active Substance: HUMAN IMMUNOGLOBULIN G
     Dosage: UNK
     Route: 058
  2. LIDOCAINE. [Concomitant]
     Active Substance: LIDOCAINE
     Route: 065
  3. VITAMIN D3 [Concomitant]
     Active Substance: CHOLECALCIFEROL
     Route: 065
  4. ACETAMINOPHEN. [Concomitant]
     Active Substance: ACETAMINOPHEN
     Route: 065
  5. DIPHENHYDRAMINE. [Concomitant]
     Active Substance: DIPHENHYDRAMINE
     Route: 065
  6. BUDESONIDE. [Concomitant]
     Active Substance: BUDESONIDE
     Route: 065
  7. SELEGILIN [Concomitant]
     Active Substance: SELEGILINE
     Route: 065
  8. EPINEPHRINE. [Concomitant]
     Active Substance: EPINEPHRINE
     Route: 065
  9. LOPERAMIDE [Concomitant]
     Active Substance: LOPERAMIDE
     Route: 065
  10. CLARITIN [Concomitant]
     Active Substance: LORATADINE
     Route: 065
  11. PRAMIPEXOLE. [Concomitant]
     Active Substance: PRAMIPEXOLE
     Route: 065
  12. CARBIDOPA AND LEVODOPA [Concomitant]
     Active Substance: CARBIDOPA\LEVODOPA
     Route: 065
  13. ASPIRIN. [Concomitant]
     Active Substance: ASPIRIN
     Route: 065
  14. HIZENTRA [Suspect]
     Active Substance: HUMAN IMMUNOGLOBULIN G
     Dosage: 5 G, QW
     Route: 058
     Dates: start: 20180319
  15. CARVEDILOL. [Concomitant]
     Active Substance: CARVEDILOL
     Route: 065
  16. GABAPENTIN. [Concomitant]
     Active Substance: GABAPENTIN
     Route: 065
  17. MESALAMINE. [Concomitant]
     Active Substance: MESALAMINE
     Route: 065
  18. HIZENTRA [Suspect]
     Active Substance: HUMAN IMMUNOGLOBULIN G
     Indication: HYPOGAMMAGLOBULINAEMIA
     Dosage: UNK
     Route: 058

REACTIONS (5)
  - Bowel movement irregularity [Unknown]
  - Diarrhoea [Unknown]
  - Incontinence [Unknown]
  - Influenza like illness [Recovered/Resolved]
  - Faeces discoloured [Unknown]

NARRATIVE: CASE EVENT DATE: 20180321
